FAERS Safety Report 9995470 (Version 2)
Quarter: 2014Q2

REPORT INFORMATION
  Report Type: Report from Study
  Country: US (occurrence: US)
  Receive Date: 20140311
  Receipt Date: 20140409
  Transmission Date: 20141212
  Serious: Yes (Other)
  Sender: FDA-Public Use
  Company Number: US-PURDUE-USA-2014-0111598

PATIENT
  Age: 27 Year
  Sex: Male

DRUGS (2)
  1. OXY CR TAB [Suspect]
     Indication: PRODUCT USED FOR UNKNOWN INDICATION
     Dosage: 40 MG, Q12H
     Route: 048
     Dates: start: 20140124
  2. OXY CR TAB [Suspect]
     Dosage: 60 MG, Q12H
     Route: 048

REACTIONS (5)
  - Spinal cord disorder [Unknown]
  - Intervertebral disc protrusion [Unknown]
  - Mobility decreased [Unknown]
  - Paralysis [Unknown]
  - Hypoaesthesia [Unknown]
